FAERS Safety Report 19081037 (Version 1)
Quarter: 2021Q1

REPORT INFORMATION
  Report Type: Other
  Country: IT (occurrence: IT)
  Receive Date: 20210331
  Receipt Date: 20210331
  Transmission Date: 20210420
  Serious: Yes (Other)
  Sender: FDA-Public Use
  Company Number: IT-VALIDUS PHARMACEUTICALS LLC-IT-2021VAL000941

PATIENT
  Age: 50 Year
  Sex: Male
  Weight: 118 kg

DRUGS (2)
  1. LUVION                             /00252502/ [Suspect]
     Active Substance: CANRENOATE POTASSIUM
     Indication: CARDIAC FAILURE
     Dosage: 50 MG, TOTAL
     Route: 048
  2. LASIX [Suspect]
     Active Substance: FUROSEMIDE
     Indication: CARDIAC FAILURE
     Dosage: 25 MG, TOTAL
     Route: 048

REACTIONS (1)
  - Asthmatic crisis [Recovered/Resolved]
